FAERS Safety Report 11557929 (Version 1)
Quarter: 2015Q3

REPORT INFORMATION
  Report Type: Spontaneous
  Country: US (occurrence: None)
  Receive Date: 20150924
  Receipt Date: 20150924
  Transmission Date: 20151125
  Serious: No
  Sender: FDA-Public Use
  Company Number: 15AE046

PATIENT
  Sex: Male

DRUGS (1)
  1. EQUATE IBUPROFEN [Suspect]
     Active Substance: IBUPROFEN
     Indication: MYOSITIS

REACTIONS (2)
  - Feeling jittery [None]
  - Initial insomnia [None]

NARRATIVE: CASE EVENT DATE: 20150911
